FAERS Safety Report 6560289 (Version 13)
Quarter: 2014Q2

REPORT INFORMATION
  Report Type: Spontaneous
  Country: US (occurrence: US)
  Receive Date: 20080225
  Receipt Date: 20140401
  Transmission Date: 20141212
  Serious: Yes (Other)
  Sender: FDA-Public Use
  Company Number: US-ROCHE-521769

PATIENT
  Age: 27 Year
  Sex: Female
  Weight: 136.1 kg

DRUGS (11)
  1. ACCUTANE [Suspect]
     Indication: HIDRADENITIS
     Route: 048
  2. ACCUTANE [Suspect]
     Route: 048
  3. ACCUTANE [Suspect]
     Route: 048
  4. ACCUTANE [Suspect]
     Route: 048
  5. ACCUTANE [Suspect]
     Route: 048
  6. ACCUTANE [Suspect]
     Route: 048
  7. ACCUTANE [Suspect]
     Route: 048
  8. ACCUTANE [Suspect]
     Route: 048
     Dates: start: 20030521, end: 20030611
  9. PROPOXYPHENE/ACETAMINOPHEN [Concomitant]
  10. CIPRO [Concomitant]
  11. COLCHICINE [Concomitant]

REACTIONS (19)
  - Inflammatory bowel disease [Unknown]
  - Colitis ulcerative [Unknown]
  - Crohn^s disease [Unknown]
  - Intestinal obstruction [Unknown]
  - Suicidal ideation [Unknown]
  - Stitch abscess [Unknown]
  - Fracture [Unknown]
  - Cyst [Not Recovered/Not Resolved]
  - Depression [Unknown]
  - Anxiety [Unknown]
  - Stress [Unknown]
  - Irritable bowel syndrome [Unknown]
  - Cervical dysplasia [Unknown]
  - Epistaxis [Unknown]
  - Lip dry [Unknown]
  - Arthralgia [Unknown]
  - Acne [Unknown]
  - Enteritis [Unknown]
  - Colitis [Unknown]
